FAERS Safety Report 21648941 (Version 1)
Quarter: 2022Q4

REPORT INFORMATION
  Report Type: Other
  Country: CN (occurrence: CN)
  Receive Date: 20221128
  Receipt Date: 20221128
  Transmission Date: 20230113
  Serious: Yes (Hospitalization, Other)
  Sender: FDA-Public Use
  Company Number: CN-DEXPHARM-20222382

PATIENT
  Age: 43 Year
  Sex: Male

DRUGS (10)
  1. DEXAMETHASONE [Suspect]
     Active Substance: DEXAMETHASONE
     Indication: Gouty arthritis
  2. DICLOFENAC [Suspect]
     Active Substance: DICLOFENAC
     Indication: Gouty arthritis
  3. LOSARTAN [Suspect]
     Active Substance: LOSARTAN
     Indication: Gouty arthritis
  4. FLURBIPROFEN [Suspect]
     Active Substance: FLURBIPROFEN
     Indication: Gouty arthritis
  5. COLCHICINE [Suspect]
     Active Substance: COLCHICINE
     Indication: Gouty arthritis
  6. CEFAZOLIN [Concomitant]
     Active Substance: CEFAZOLIN
  7. FEBUXOSTAT [Concomitant]
     Active Substance: FEBUXOSTAT
  8. NIFEDIPINE [Concomitant]
     Active Substance: NIFEDIPINE
  9. MORPHINE [Concomitant]
     Active Substance: MORPHINE
  10. LEVOFLOXACIN [Concomitant]
     Active Substance: LEVOFLOXACIN

REACTIONS (2)
  - Arthritis bacterial [Recovered/Resolved]
  - Acute kidney injury [Recovered/Resolved]
